FAERS Safety Report 4636530-7 (Version None)
Quarter: 2005Q2

REPORT INFORMATION
  Report Type: 
  Country: None (occurrence: None)
  Receive Date: 20050415
  Receipt Date: 20050208
  Transmission Date: 20051028
  Serious: Yes (Hospitalization)
  Sender: FDA-Public Use
  Company Number: CH-GLAXOSMITHKLINE-B0370695A

PATIENT
  Age: 64 Year
  Sex: Male

DRUGS (4)
  1. FOSAMPRENAVIR [Suspect]
     Indication: HIV INFECTION
     Dosage: 700MG TWICE PER DAY
     Route: 048
     Dates: start: 20040106
  2. DIDANOSINE [Concomitant]
     Indication: HIV INFECTION
     Dosage: 250MG PER DAY
     Dates: start: 20020715
  3. TENOFOVIR [Concomitant]
     Indication: HIV INFECTION
     Dosage: 245MG PER DAY
     Dates: start: 20020715
  4. RITONAVIR [Concomitant]
     Indication: HIV INFECTION
     Dosage: 200MG PER DAY
     Dates: start: 20040106

REACTIONS (4)
  - CASTLEMAN'S DISEASE [None]
  - FOOD AVERSION [None]
  - LYMPHADENOPATHY [None]
  - WEIGHT DECREASED [None]
